FAERS Safety Report 7149504-1 (Version None)
Quarter: 2010Q4

REPORT INFORMATION
  Report Type: 
  Country: None (occurrence: None)
  Receive Date: 20101209
  Receipt Date: 20100618
  Transmission Date: 20110411
  Serious: Yes (Hospitalization, Disabling, Other)
  Sender: FDA-Public Use
  Company Number: US-BAYER-201021275NA

PATIENT
  Sex: Female
  Weight: 59.091 kg

DRUGS (19)
  1. YASMIN [Suspect]
     Route: 048
     Dates: start: 20071201, end: 20080101
  2. YAZ [Suspect]
     Route: 048
     Dates: start: 20071001, end: 20080301
  3. GABAPENTIN [Concomitant]
     Route: 065
     Dates: start: 20090101
  4. LIBRAX [Concomitant]
     Indication: IRRITABLE BOWEL SYNDROME
     Route: 065
     Dates: start: 20090101, end: 20100101
  5. ACETAMINOPHEN [Concomitant]
     Route: 065
  6. IBUPROFEN [Concomitant]
     Route: 065
  7. IRON [Concomitant]
     Dosage: 50 MG (DAILY DOSE), QD, UNKNOWN
     Route: 065
     Dates: start: 20080101
  8. OXYCODONE [Concomitant]
     Dosage: AS NEEDED, 10 MG PER MOUTH.
     Route: 048
  9. FERROUS SULFATE [Concomitant]
  10. CARBONYL IRON [IRON PENTACARBONYL] [Concomitant]
     Route: 048
  11. HYDROMORPHONE [Concomitant]
     Dosage: 24 MG (DAILY DOSE), Q4HR, INTRAVENOUS
     Route: 042
  12. ENOXAPARIN [Concomitant]
     Dosage: 60 MG/0.6 ML SOLUTION)=
     Route: 058
  13. MOTRIN [Concomitant]
     Route: 042
  14. CODEINE [Concomitant]
     Route: 065
  15. ACETAMINOPHEN W/ CODEINE [Concomitant]
     Route: 065
  16. PANTOPRAZOLE [Concomitant]
     Route: 065
  17. MAGNESIUM SULFATE [Concomitant]
     Route: 042
  18. SENNA [Concomitant]
     Route: 065
  19. MIRALAX [Concomitant]
     Route: 065

REACTIONS (10)
  - ABDOMINAL PAIN [None]
  - CYANOSIS [None]
  - DEEP VEIN THROMBOSIS [None]
  - JOINT EFFUSION [None]
  - LYMPHOEDEMA [None]
  - NAUSEA [None]
  - POST THROMBOTIC SYNDROME [None]
  - RASH [None]
  - TENDERNESS [None]
  - THROMBOPHLEBITIS SUPERFICIAL [None]
